FAERS Safety Report 4684943-X (Version None)
Quarter: 2005Q2

REPORT INFORMATION
  Report Type: 
  Country: None (occurrence: None)
  Receive Date: 20050603
  Receipt Date: 20050603
  Transmission Date: 20051028
  Serious: Yes (Disabling)
  Sender: FDA-Public Use
  Company Number: 11246

PATIENT
  Age: 74 Year
  Sex: Male

DRUGS (1)
  1. AMIODARONE [Suspect]
     Indication: ARRHYTHMIA
     Dosage: 200 MG PO
     Route: 048
     Dates: start: 19830101, end: 20050504

REACTIONS (2)
  - DYSPNOEA [None]
  - PULMONARY FIBROSIS [None]
